FAERS Safety Report 18687691 (Version 1)
Quarter: 2020Q4

REPORT INFORMATION
  Report Type: Report from Study
  Country: US (occurrence: US)
  Receive Date: 20201231
  Receipt Date: 20201231
  Transmission Date: 20210114
  Serious: Yes (Hospitalization)
  Sender: FDA-Public Use
  Company Number: US-EMD SERONO-9209584

PATIENT
  Age: 60 Year
  Sex: Male

DRUGS (2)
  1. REBIF [Suspect]
     Active Substance: INTERFERON BETA-1A
     Indication: PRODUCT USED FOR UNKNOWN INDICATION
     Route: 058
     Dates: end: 202011
  2. REBIF [Suspect]
     Active Substance: INTERFERON BETA-1A
     Dosage: THERPY START DATE: 11-DEC-2020
     Route: 058

REACTIONS (7)
  - Insurance issue [Recovered/Resolved]
  - Sepsis [Recovering/Resolving]
  - Pain [Unknown]
  - Pyrexia [Unknown]
  - Nephrolithiasis [Recovering/Resolving]
  - Treatment noncompliance [Recovered/Resolved]
  - Incorrect dose administered [Recovered/Resolved]

NARRATIVE: CASE EVENT DATE: 202011
